FAERS Safety Report 8127525-X (Version None)
Quarter: 2012Q1

REPORT INFORMATION
  Report Type: 
  Country: None (occurrence: None)
  Receive Date: 20120210
  Receipt Date: 20120131
  Transmission Date: 20120608
  Serious: Yes (Hospitalization)
  Sender: FDA-Public Use
  Company Number: DE-VERTEX PHARMACEUTICALS INC.-000000000000000151

PATIENT
  Age: 63 Year
  Sex: Female

DRUGS (2)
  1. ANTIVIRAL MEDICATION [Concomitant]
     Route: 065
  2. INCIVO (TELAPREVIR) [Suspect]
     Indication: PRODUCT USED FOR UNKNOWN INDICATION
     Dosage: DOSAGE FORM: TABLET
     Route: 048
     Dates: start: 20111208

REACTIONS (1)
  - RASH GENERALISED [None]
